FAERS Safety Report 7279937-4 (Version None)
Quarter: 2011Q1

REPORT INFORMATION
  Report Type: 
  Country: None (occurrence: None)
  Receive Date: 20110208
  Receipt Date: 20100817
  Transmission Date: 20110831
  Serious: Yes (Other)
  Sender: FDA-Public Use
  Company Number: US-BAYER-201031207NA

PATIENT
  Sex: Female

DRUGS (4)
  1. YAZ [Suspect]
     Indication: PRODUCT USED FOR UNKNOWN INDICATION
     Route: 065
     Dates: start: 20011001, end: 20050501
  2. YASMIN [Suspect]
     Indication: PRODUCT USED FOR UNKNOWN INDICATION
     Route: 065
     Dates: start: 20011001, end: 20050501
  3. YASMIN [Suspect]
     Dosage: UNK
     Dates: start: 20031214, end: 20041104
  4. YASMIN [Suspect]
     Dosage: UNK
     Dates: start: 20050109, end: 20051211

REACTIONS (1)
  - GALLBLADDER DISORDER [None]
